FAERS Safety Report 4334960-4 (Version None)
Quarter: 2004Q2

REPORT INFORMATION
  Report Type: 
  Country: None (occurrence: None)
  Receive Date: 20040405
  Receipt Date: 20040326
  Transmission Date: 20050107
  Serious: Yes (Hospitalization)
  Sender: FDA-Public Use
  Company Number: CIP04000661

PATIENT
  Age: 60 Year
  Sex: Female
  Weight: 63.5 kg

DRUGS (1)
  1. ACTONEL [Suspect]
     Indication: OSTEOPOROSIS POSTMENOPAUSAL
     Dosage: 35 MG ONE DOSE, ORAL
     Route: 048
     Dates: start: 20031021, end: 20031021

REACTIONS (5)
  - BACK INJURY [None]
  - BACK PAIN [None]
  - CHEST PAIN [None]
  - JOINT SPRAIN [None]
  - MYALGIA [None]
